FAERS Safety Report 8119941-7 (Version None)
Quarter: 2012Q1

REPORT INFORMATION
  Report Type: 
  Country: None (occurrence: None)
  Receive Date: 20120207
  Receipt Date: 20120125
  Transmission Date: 20120608
  Serious: Yes (Hospitalization)
  Sender: FDA-Public Use
  Company Number: CZ-TEVA-2011006364

PATIENT
  Sex: Male
  Weight: 105 kg

DRUGS (11)
  1. LOKREN [Concomitant]
     Dates: start: 20111021, end: 20111129
  2. PURINOL [Concomitant]
     Dates: end: 20111102
  3. ZOVIRAX [Concomitant]
     Dates: start: 20111021, end: 20111220
  4. DEXAMETHASONE [Suspect]
     Indication: MULTIPLE MYELOMA
     Route: 048
     Dates: start: 20111021
  5. SUMETROLIM [Concomitant]
     Dates: start: 20111021
  6. TRAMADOL HYDROCHLORIDE [Concomitant]
  7. BORTEZOMIB [Suspect]
     Indication: MULTIPLE MYELOMA
     Route: 042
     Dates: start: 20111021
  8. BENDAMUSTINE HCL [Suspect]
     Indication: MULTIPLE MYELOMA
     Route: 042
     Dates: start: 20111021
  9. PROSTAMOL [Concomitant]
     Dates: end: 20111116
  10. ESPUMISAN [Concomitant]
     Dates: start: 20111125, end: 20111202
  11. TAMSULOSIN HYDROCHLORIDE [Concomitant]

REACTIONS (1)
  - POLYNEUROPATHY [None]
